FAERS Safety Report 12856634 (Version 1)
Quarter: 2016Q4

REPORT INFORMATION
  Report Type: Spontaneous
  Country: US (occurrence: US)
  Receive Date: 20161018
  Receipt Date: 20161018
  Transmission Date: 20170207
  Serious: Yes (Hospitalization)
  Sender: FDA-Public Use
  Company Number: None

PATIENT
  Age: 21 Year
  Sex: Male
  Weight: 90.72 kg

DRUGS (2)
  1. HYOSCYAMINE SULFATE. [Suspect]
     Active Substance: HYOSCYAMINE SULFATE
     Indication: INFECTION
     Dates: start: 201602, end: 201609
  2. HYOSCYAMINE SULFATE. [Suspect]
     Active Substance: HYOSCYAMINE SULFATE
     Indication: IRRITABLE BOWEL SYNDROME
     Dates: start: 201602, end: 201609

REACTIONS (4)
  - Disorientation [None]
  - Generalised tonic-clonic seizure [None]
  - Anxiety [None]
  - Blood pressure increased [None]

NARRATIVE: CASE EVENT DATE: 20160425
